FAERS Safety Report 10598194 (Version 1)
Quarter: 2014Q4

REPORT INFORMATION
  Report Type: Spontaneous
  Country: KR (occurrence: None)
  Receive Date: 20141119
  Receipt Date: 20141119
  Transmission Date: 20150529
  Serious: Yes (Hospitalization)
  Sender: FDA-Public Use
  Company Number: INT_00512_2014

PATIENT
  Age: 74 Year
  Sex: Male
  Weight: 58.9 kg

DRUGS (2)
  1. ETOPOSIDE (ETOPOSIDE) [Suspect]
     Active Substance: ETOPOSIDE
     Indication: MALIGNANT PLEURAL EFFUSION
     Dosage: PER DAY OVER 3 DAYS
     Route: 042
  2. CISPLATIN (CISPLATIN) (HQ SPECIALTY) [Suspect]
     Active Substance: CISPLATIN
     Indication: MALIGNANT PLEURAL EFFUSION
     Dosage: PER DAY OVER 1 DAY
     Route: 042

REACTIONS (3)
  - Chest discomfort [None]
  - Dyspnoea exertional [None]
  - Aortic thrombosis [None]
